FAERS Safety Report 5275698-9 (Version None)
Quarter: 2007Q1

REPORT INFORMATION
  Report Type: 
  Country: None (occurrence: None)
  Receive Date: 20061213
  Receipt Date: 20040322
  Transmission Date: 20070707
  Serious: Yes (Hospitalization)
  Sender: FDA-Public Use
  Company Number: 2004UW05510

PATIENT
  Age: 53 Year
  Sex: Female
  Weight: 63.5036 kg

DRUGS (7)
  1. SEROQUEL [Suspect]
     Indication: BIPOLAR DISORDER
  2. LITHIUM CARBONATE [Concomitant]
  3. TRAZODONE HCL [Concomitant]
  4. ADVAIR DISKUS 100/50 [Concomitant]
  5. FLONASE [Concomitant]
  6. ALBUTEROL [Concomitant]
  7. ALESSE [Concomitant]

REACTIONS (1)
  - DYSPNOEA [None]
